FAERS Safety Report 23444193 (Version 1)
Quarter: 2024Q1

REPORT INFORMATION
  Report Type: Report from Study
  Country: GB (occurrence: GB)
  Receive Date: 20240125
  Receipt Date: 20240125
  Transmission Date: 20240410
  Serious: Yes (Other)
  Sender: FDA-Public Use
  Company Number: GB-BAXTER-2024BAX011271

PATIENT
  Age: 29 Year
  Sex: Female
  Weight: 40 kg

DRUGS (14)
  1. WATER FOR INJECTION [Suspect]
     Active Substance: WATER
     Indication: Parenteral nutrition
     Dosage: 1500 ML (MILLILITRE) OVER 6 HRS (HOURS)
     Route: 065
     Dates: start: 20240120
  2. DEXTROSE [Suspect]
     Active Substance: DEXTROSE\DEXTROSE MONOHYDRATE
     Indication: Parenteral nutrition
     Dosage: 1500 ML (MILLILITRE) OVER 6 HRS (HOURS)
     Route: 065
     Dates: start: 20240120
  3. CERNEVIT [Suspect]
     Active Substance: VITAMINS
     Indication: Parenteral nutrition
     Dosage: 1500 ML (MILLILITRE) OVER 6 HRS (HOURS)
     Route: 065
     Dates: start: 20240120
  4. CALCIUM CHLORIDE [Suspect]
     Active Substance: CALCIUM CHLORIDE
     Indication: Parenteral nutrition
     Dosage: 1500 ML (MILLILITRE) OVER 6 HRS (HOURS)
     Route: 065
     Dates: start: 20240120
  5. MAGNESIUM SULFATE [Suspect]
     Active Substance: MAGNESIUM SULFATE\MAGNESIUM SULFATE HEPTAHYDRATE
     Indication: Parenteral nutrition
     Dosage: 1500 ML (MILLILITRE) OVER 6 HRS (HOURS)
     Route: 065
     Dates: start: 20240120
  6. POTASSIUM CHLORIDE [Suspect]
     Active Substance: POTASSIUM CHLORIDE
     Indication: Parenteral nutrition
     Dosage: 1500 ML (MILLILITRE) OVER 6 HRS (HOURS)
     Route: 065
     Dates: start: 20240120
  7. SODIUM CHLORIDE [Suspect]
     Active Substance: SODIUM CHLORIDE
     Indication: Parenteral nutrition
     Dosage: 1500 ML (MILLILITRE) OVER 6 HRS (HOURS)
     Route: 065
     Dates: start: 20240120
  8. SODIUM GLYCEROPHOSPHATE [Suspect]
     Active Substance: SODIUM GLYCEROPHOSPHATE
     Indication: Parenteral nutrition
     Dosage: 1500 ML (MILLILITRE) OVER 6 HRS (HOURS)
     Route: 065
     Dates: start: 20240120
  9. WATER [Suspect]
     Active Substance: WATER
     Indication: Parenteral nutrition
     Dosage: WATER FOR TPN FORMULATIONS, 1500 ML (MILLILITRE) OVER 6 HRS (HOURS)
     Route: 065
     Dates: start: 20240120
  10. ZINC SULFATE [Suspect]
     Active Substance: ZINC SULFATE
     Indication: Parenteral nutrition
     Dosage: 1500 ML (MILLILITRE) OVER 6 HRS (HOURS)
     Route: 065
     Dates: start: 20240120
  11. SMOFLIPID [Suspect]
     Active Substance: FISH OIL\MEDIUM-CHAIN TRIGLYCERIDES\OLIVE OIL\SOYBEAN OIL
     Indication: Parenteral nutrition
     Dosage: 1500 ML (MILLILITRE) OVER 6 HRS (HOURS)
     Route: 065
     Dates: start: 20240120
  12. ELECTROLYTES NOS\MINERALS [Suspect]
     Active Substance: ELECTROLYTES NOS\MINERALS
     Indication: Parenteral nutrition
     Dosage: 1500 ML (MILLILITRE) OVER 6 HRS (HOURS)
     Route: 065
     Dates: start: 20240120
  13. AMINO ACIDS, SOURCE UNSPECIFIED [Suspect]
     Active Substance: AMINO ACIDS, SOURCE UNSPECIFIED
     Indication: Parenteral nutrition
     Dosage: AMINOVEN 25, 1500 ML (MILLILITRE) OVER 6 HRS (HOURS)
     Route: 065
     Dates: start: 20240120
  14. UNSPECIFIED INGREDIENT [Suspect]
     Active Substance: UNSPECIFIED INGREDIENT
     Route: 065

REACTIONS (1)
  - Pyrexia [Unknown]

NARRATIVE: CASE EVENT DATE: 20240120
